FAERS Safety Report 14307253 (Version 1)
Quarter: 2017Q4

REPORT INFORMATION
  Report Type: Spontaneous
  Country: FR (occurrence: FR)
  Receive Date: 20171220
  Receipt Date: 20171220
  Transmission Date: 20180321
  Serious: Yes (Other)
  Sender: FDA-Public Use
  Company Number: FR-MERCK KGAA-2037462

PATIENT
  Age: 38 Year
  Sex: Female

DRUGS (2)
  1. NOVOTHYROX [Suspect]
     Active Substance: LEVOTHYROXINE SODIUM
     Indication: POST PROCEDURAL HYPOTHYROIDISM
     Dates: start: 201704
  2. NOVOTHYROX [Suspect]
     Active Substance: LEVOTHYROXINE SODIUM
     Dates: start: 20170714

REACTIONS (34)
  - Vertigo [Recovering/Resolving]
  - Eye disorder [None]
  - Hyperacusis [None]
  - Dysgeusia [None]
  - Impaired healing [None]
  - Abdominal pain lower [None]
  - Dizziness [None]
  - Migraine [None]
  - Dyspnoea [Recovering/Resolving]
  - Hyperthyroidism [Recovering/Resolving]
  - Tremor [None]
  - Irritability [Recovering/Resolving]
  - Apathy [Recovering/Resolving]
  - Blood thyroid stimulating hormone decreased [None]
  - Fall [None]
  - Gait disturbance [None]
  - Asthenia [None]
  - Myalgia [Recovering/Resolving]
  - Limb injury [None]
  - Eye pain [None]
  - Weight decreased [None]
  - Night sweats [None]
  - Depression [Recovering/Resolving]
  - Decreased appetite [None]
  - Fear [Recovering/Resolving]
  - Nausea [None]
  - Chest pain [Recovering/Resolving]
  - Diarrhoea [Recovering/Resolving]
  - Fatigue [Recovering/Resolving]
  - Agitation [Recovering/Resolving]
  - Anxiety [Recovering/Resolving]
  - Dysstasia [None]
  - Headache [Recovering/Resolving]
  - Muscle spasms [Recovering/Resolving]

NARRATIVE: CASE EVENT DATE: 2017
